FAERS Safety Report 14439411 (Version 2)
Quarter: 2018Q2

REPORT INFORMATION
  Report Type: Spontaneous
  Country: JP (occurrence: JP)
  Receive Date: 20180125
  Receipt Date: 20180409
  Transmission Date: 20180711
  Serious: Yes (Hospitalization)
  Sender: FDA-Public Use
  Company Number: JP-SA-2018SA016452

PATIENT
  Age: 82 Year
  Sex: Male

DRUGS (4)
  1. FAMOTIDINE. [Concomitant]
     Active Substance: FAMOTIDINE
     Route: 065
  2. JEVTANA [Suspect]
     Active Substance: CABAZITAXEL
     Route: 042
     Dates: start: 20171116, end: 20171116
  3. DEXAMETHASONE. [Concomitant]
     Active Substance: DEXAMETHASONE
     Indication: PREMEDICATION
     Route: 065
     Dates: start: 20171116, end: 20171116
  4. CHLORPHENIRAMINE MALEATE. [Concomitant]
     Active Substance: CHLORPHENIRAMINE MALEATE
     Indication: PREMEDICATION
     Route: 065
     Dates: start: 20171116, end: 20171116

REACTIONS (3)
  - Pneumatosis intestinalis [Recovering/Resolving]
  - Vomiting [Recovered/Resolved]
  - Ileus paralytic [Recovered/Resolved]

NARRATIVE: CASE EVENT DATE: 20171124
